FAERS Safety Report 14288239 (Version 18)
Quarter: 2018Q4

REPORT INFORMATION
  Report Type: Spontaneous
  Country: DE (occurrence: DE)
  Receive Date: 20171214
  Receipt Date: 20181009
  Transmission Date: 20190204
  Serious: Yes (Hospitalization, Other)
  Sender: FDA-Public Use
  Company Number: DE-TEVA-2017-DE-831287

PATIENT
  Age: 44 Year
  Sex: Female

DRUGS (24)
  1. PERTUZUMAB. [Suspect]
     Active Substance: PERTUZUMAB
     Dosage: 420 MG/KG, Q3WK, MAINTENANCE DOSE (AS PER PROTOCOL)DATE OF LAST DOSE PRIOR TO SAE:12-OCT-2017
     Route: 042
     Dates: start: 20170920
  2. DOCETAXEL. [Suspect]
     Active Substance: DOCETAXEL
     Indication: HER-2 POSITIVE BREAST CANCER
     Dosage: 75 MG/M2 DAILY; MAINTENANCE DOSE (AS PER PROTOCOL) DATE OF LAST DOSE PRIOR TO SAE: 12-OCT-2017.
     Route: 042
     Dates: start: 20170920
  3. FILGRASTIM [Suspect]
     Active Substance: FILGRASTIM
     Dates: start: 20171115
  4. ONDANSETRON A [Concomitant]
     Active Substance: ONDANSETRON HYDROCHLORIDE
     Indication: NAUSEA
  5. TRASTUZUMAB. [Suspect]
     Active Substance: TRASTUZUMAB
     Indication: HER-2 POSITIVE BREAST CANCER
     Dosage: 8 MG/KG, Q3WK LOADING DOSE
     Route: 042
     Dates: start: 20170920
  6. FILGRASTIM [Suspect]
     Active Substance: FILGRASTIM
     Indication: PRODUCT USED FOR UNKNOWN INDICATION
     Dosage: 48 IU, UNK (DAY 2-4), DATE OF LAST DOSE PRIOR TO SAE: 12/OCT/2017
     Route: 065
     Dates: start: 20170920
  7. PREGABALIN. [Concomitant]
     Active Substance: PREGABALIN
     Indication: ANXIETY DISORDER
  8. TRASTUZUMAB. [Suspect]
     Active Substance: TRASTUZUMAB
     Dosage: 6 MG/KG, Q3WK MAINTENANCE DOSE
     Route: 042
  9. ONDANSETRON A [Concomitant]
     Active Substance: ONDANSETRON HYDROCHLORIDE
     Indication: VOMITING
     Route: 065
     Dates: start: 20171115
  10. PREGABALIN. [Concomitant]
     Active Substance: PREGABALIN
     Indication: EPILEPSY
     Route: 065
  11. DEXAMETHASON [Concomitant]
     Active Substance: DEXAMETHASONE
     Indication: INFLAMMATION
     Route: 065
     Dates: start: 20171115
  12. MIRTAZAPIN [Concomitant]
     Active Substance: MIRTAZAPINE
     Indication: DEPRESSION
     Route: 065
  13. DOCETAXEL. [Suspect]
     Active Substance: DOCETAXEL
     Dosage: LOADING DOSE (AS PER PROTOCOL)
     Route: 042
     Dates: start: 20170920
  14. PERTUZUMAB. [Suspect]
     Active Substance: PERTUZUMAB
     Indication: HER-2 POSITIVE BREAST CANCER
     Dosage: 840 MG/KG, Q3WK?LOADING DOSE (AS PER PROTOCOL)
     Route: 042
     Dates: start: 20170920
  15. HERCEPTIN [Suspect]
     Active Substance: TRASTUZUMAB
     Indication: HER-2 POSITIVE BREAST CANCER
     Dosage: 8 MG/KG, Q3WK?MAINTENANCE DOSE (AS PER PROTOCOL) DATE OF LAST DOSE PRIOR TO SAE:12-OCT-2017
     Route: 042
     Dates: start: 20170920
  16. HERCEPTIN [Suspect]
     Active Substance: TRASTUZUMAB
     Dosage: MAINTENANCE DOSE (AS PER PROTOCOL) DATE OF LAST DOSE PRIOR TO SAE: 12-OCT-2017
     Route: 042
  17. PREGABALIN. [Concomitant]
     Active Substance: PREGABALIN
     Indication: NEURALGIA
  18. MIRTAZAPIN [Concomitant]
     Active Substance: MIRTAZAPINE
     Route: 065
  19. PANTOPRAZOLE [Concomitant]
     Active Substance: PANTOPRAZOLE
     Route: 065
  20. DOCETAXEL. [Suspect]
     Active Substance: DOCETAXEL
     Dosage: DAILY DOSE: 35 MG/M2 MILLIGRAM(S)/SQ. METER EVERY 3 WEEK
     Route: 042
     Dates: start: 20170920
  21. ZOFRAN [Concomitant]
     Active Substance: ONDANSETRON HYDROCHLORIDE
     Indication: NAUSEA
     Route: 065
  22. ZOFRAN [Concomitant]
     Active Substance: ONDANSETRON HYDROCHLORIDE
     Indication: VOMITING
  23. ZOPICLONE [Concomitant]
     Active Substance: ZOPICLONE
     Indication: SLEEP DISORDER
     Dosage: 7.5 MILLIGRAM DAILY;
     Route: 065
     Dates: start: 20171115
  24. OXYCODON [Concomitant]
     Active Substance: OXYCODONE
     Indication: PAIN
     Route: 065

REACTIONS (10)
  - Fatigue [Not Recovered/Not Resolved]
  - Dizziness [Recovered/Resolved]
  - Anaemia [Recovered/Resolved]
  - Polyneuropathy [Not Recovered/Not Resolved]
  - Diarrhoea [Not Recovered/Not Resolved]
  - Stomatitis [Recovered/Resolved]
  - Neutropenia [Recovered/Resolved]
  - Thrombocytopenia [Recovered/Resolved]
  - Anaemia [Recovered/Resolved]
  - Anaemia [Recovered/Resolved]

NARRATIVE: CASE EVENT DATE: 20170920
